FAERS Safety Report 21458878 (Version 3)
Quarter: 2022Q4

REPORT INFORMATION
  Report Type: Spontaneous
  Country: PL (occurrence: PL)
  Receive Date: 20221014
  Receipt Date: 20221114
  Transmission Date: 20230113
  Serious: Yes (Other)
  Sender: FDA-Public Use
  Company Number: PL-NOVARTISPH-NVSC2022PL227383

PATIENT
  Age: 60 Year
  Sex: Male

DRUGS (13)
  1. ROSUVASTATIN CALCIUM [Suspect]
     Active Substance: ROSUVASTATIN CALCIUM
     Indication: Cardiac failure chronic
     Dosage: 40 MG, QD
     Route: 065
  2. RAMIPRIL [Suspect]
     Active Substance: RAMIPRIL
     Indication: Cardiac failure chronic
     Dosage: 2.5 MG, QD
     Route: 065
  3. TORSEMIDE [Suspect]
     Active Substance: TORSEMIDE
     Indication: Cardiac failure chronic
     Dosage: 10 MG
     Route: 065
  4. BISOPROLOL [Suspect]
     Active Substance: BISOPROLOL
     Indication: Cardiac failure chronic
     Dosage: 2.5 MG, QD (1 EVERY 1 DAY)
     Route: 065
  5. ASPIRIN [Suspect]
     Active Substance: ASPIRIN
     Indication: Cardiac failure chronic
     Dosage: 75 MG, QD
     Route: 065
  6. FUROSEMIDE [Suspect]
     Active Substance: FUROSEMIDE
     Indication: Cardiac failure chronic
     Dosage: UNK , 20-40 MG
     Route: 065
  7. APIXABAN [Suspect]
     Active Substance: APIXABAN
     Indication: Cardiac failure chronic
     Dosage: 5 MG, QD
     Route: 065
  8. CLOPIDOGREL [Suspect]
     Active Substance: CLOPIDOGREL BISULFATE
     Indication: Cardiac failure chronic
     Dosage: 75 MG, QD
     Route: 065
  9. CLOPIDOGREL [Suspect]
     Active Substance: CLOPIDOGREL BISULFATE
     Indication: Cardiac failure chronic
  10. PANTOPRAZOLE SODIUM [Suspect]
     Active Substance: PANTOPRAZOLE SODIUM
     Indication: Cardiac failure chronic
     Dosage: UNK
     Route: 065
  11. CLOPIDOGREL BESILATE [Suspect]
     Active Substance: CLOPIDOGREL BESILATE
     Indication: Cardiac failure chronic
     Dosage: 75 MG
     Route: 065
  12. CLOPIDOGREL BISULFATE [Suspect]
     Active Substance: CLOPIDOGREL BISULFATE
     Indication: Cardiac failure chronic
     Dosage: 75 MG, QD
     Route: 065
  13. ENTRESTO [Concomitant]
     Active Substance: SACUBITRIL\VALSARTAN
     Indication: Product used for unknown indication
     Dosage: UNK , 49/51 MG / , 24/26
     Route: 065

REACTIONS (5)
  - Cardiac failure [Unknown]
  - Atrial fibrillation [Unknown]
  - Myocardial infarction [Unknown]
  - Dyslipidaemia [Unknown]
  - Off label use [Unknown]
